FAERS Safety Report 8394902-1 (Version None)
Quarter: 2012Q2

REPORT INFORMATION
  Report Type: 
  Country: None (occurrence: None)
  Receive Date: 20120530
  Receipt Date: 20110425
  Transmission Date: 20120825
  Serious: No
  Sender: FDA-Public Use
  Company Number: US-GLAXOSMITHKLINE-A0925050A

PATIENT
  Age: 12 Year
  Sex: Female
  Weight: 59 kg

DRUGS (5)
  1. FLOLAN [Suspect]
     Indication: PULMONARY ARTERIAL HYPERTENSION
     Dosage: 10.5NGKM UNKNOWN
     Route: 065
     Dates: start: 20110324
  2. LASIX [Concomitant]
     Dosage: 40MG UNKNOWN
     Route: 065
  3. REVATIO [Concomitant]
     Dosage: 20MG UNKNOWN
     Route: 065
  4. COUMADIN [Concomitant]
     Dosage: 3MG UNKNOWN
     Route: 065
  5. LETAIRIS [Concomitant]
     Dosage: 5MG UNKNOWN
     Route: 065

REACTIONS (1)
  - RASH GENERALISED [None]
